FAERS Safety Report 4913667-6 (Version None)
Quarter: 2006Q1

REPORT INFORMATION
  Report Type: 
  Country: None (occurrence: None)
  Receive Date: 20060216
  Receipt Date: 20060207
  Transmission Date: 20060701
  Serious: Yes (Hospitalization)
  Sender: FDA-Public Use
  Company Number: IT-JNJFOC-20060201851

PATIENT
  Age: 5 Decade
  Sex: Female
  Weight: 45 kg

DRUGS (1)
  1. RISPERDAL [Suspect]
     Indication: ANOREXIA
     Route: 048

REACTIONS (3)
  - CARDIAC DISORDER [None]
  - RENAL DISORDER [None]
  - WEIGHT INCREASED [None]
